FAERS Safety Report 4645128-6 (Version None)
Quarter: 2005Q2

REPORT INFORMATION
  Report Type: 
  Country: None (occurrence: None)
  Receive Date: 20050426
  Receipt Date: 20050422
  Transmission Date: 20051028
  Serious: Yes (Hospitalization)
  Sender: FDA-Public Use
  Company Number: CH-JNJFOC-20050405572

PATIENT
  Age: 92 Year
  Sex: Female

DRUGS (3)
  1. HALDOL [Suspect]
     Indication: PSYCHOMOTOR AGITATION
     Dosage: STRENGTH 10 MG/ML
     Route: 049
  2. LEXOTANIL [Suspect]
     Indication: PSYCHOMOTOR AGITATION
     Dosage: DOSE: 1.5 DF DOSAGE FORM
     Route: 049
  3. SERESTA [Suspect]
     Indication: PSYCHOMOTOR AGITATION
     Dosage: 1 DF DOSAGE FORM AS NECESSARY
     Route: 049

REACTIONS (2)
  - FALL [None]
  - INTENTIONAL MISUSE [None]
